FAERS Safety Report 6109073-1 (Version None)
Quarter: 2009Q1

REPORT INFORMATION
  Report Type: 
  Country: None (occurrence: None)
  Receive Date: 20090310
  Receipt Date: 20090227
  Transmission Date: 20090719
  Serious: Yes (Hospitalization, Other)
  Sender: FDA-Public Use
  Company Number: US-ELI_LILLY_AND_COMPANY-US200903000432

PATIENT
  Sex: Female

DRUGS (3)
  1. FORTEO [Suspect]
     Dosage: UNK, UNK
     Dates: start: 20040101, end: 20040101
  2. FORTEO [Suspect]
     Dosage: UNK, UNK
     Dates: start: 20070201, end: 20070801
  3. FORTEO [Suspect]
     Dosage: UNK, UNK
     Dates: start: 20090213

REACTIONS (4)
  - ADVERSE EVENT [None]
  - DISCOMFORT [None]
  - FEMUR FRACTURE [None]
  - GAIT DISTURBANCE [None]
